FAERS Safety Report 15980407 (Version 1)
Quarter: 2019Q1

REPORT INFORMATION
  Report Type: Spontaneous
  Country: US (occurrence: US)
  Receive Date: 20190219
  Receipt Date: 20190219
  Transmission Date: 20190418
  Serious: Yes (Hospitalization, Other)
  Sender: FDA-Public Use
  Company Number: US-DSJP-DSU-2017-141209

PATIENT

DRUGS (1)
  1. BENICAR HCT [Suspect]
     Active Substance: HYDROCHLOROTHIAZIDE\OLMESARTAN MEDOXOMIL
     Indication: PRODUCT USED FOR UNKNOWN INDICATION
     Dosage: 20/12.5 MG, QD
     Dates: start: 20040209, end: 20141231

REACTIONS (2)
  - Acute kidney injury [Recovered/Resolved]
  - Sprue-like enteropathy [Recovering/Resolving]

NARRATIVE: CASE EVENT DATE: 20040209
